FAERS Safety Report 6996521-8 (Version None)
Quarter: 2010Q3

REPORT INFORMATION
  Report Type: 
  Country: None (occurrence: None)
  Receive Date: 20100918
  Receipt Date: 20090331
  Transmission Date: 20110219
  Serious: No
  Sender: FDA-Public Use
  Company Number: US-WYE-H08800609

PATIENT
  Sex: Male

DRUGS (8)
  1. CORDARONE [Suspect]
     Indication: ATRIAL FIBRILLATION
     Dosage: 200 MG DAILY, ^OFF AND ON FOR 2 YEARS^
     Route: 048
     Dates: start: 20070101
  2. CORDARONE [Suspect]
     Indication: ATRIAL FLUTTER
  3. TRIAMTERENE [Concomitant]
  4. LUNESTA [Concomitant]
  5. ATORVASTATIN [Concomitant]
  6. LISINOPRIL [Concomitant]
  7. METOPROLOL [Concomitant]
  8. COUMADIN [Concomitant]

REACTIONS (1)
  - BLISTER [None]
